FAERS Safety Report 25892132 (Version 1)
Quarter: 2025Q4

REPORT INFORMATION
  Report Type: Spontaneous
  Country: US (occurrence: US)
  Receive Date: 20251007
  Receipt Date: 20251007
  Transmission Date: 20260118
  Serious: No
  Sender: INTRABIO
  Company Number: US-IBO-202500193

PATIENT
  Age: 17 Year
  Sex: Male
  Weight: 61 kg

DRUGS (1)
  1. AQNEURSA [Suspect]
     Active Substance: LEVACETYLLEUCINE
     Indication: Ataxia
     Dosage: AQNEURSA 1 GRAM SACHET??TAKE 2 PACKETS IN THE MORNING, 1 PACKET IN THE AFTERNOON, AND 1 PACKET IN TH
     Route: 065

REACTIONS (1)
  - Off label use [Unknown]
